FAERS Safety Report 6274542-0 (Version None)
Quarter: 2009Q3

REPORT INFORMATION
  Report Type: 
  Country: None (occurrence: None)
  Receive Date: 20090720
  Receipt Date: 20090710
  Transmission Date: 20100115
  Serious: Yes (Other)
  Sender: FDA-Public Use
  Company Number: JP-AVENTIS-200911953JP

PATIENT
  Age: 87 Year
  Sex: Female
  Weight: 35 kg

DRUGS (1)
  1. ENOXAPARIN SODIUM [Suspect]
     Indication: HIP SURGERY
     Route: 058
     Dates: start: 20090628, end: 20090628

REACTIONS (1)
  - HAEMOGLOBIN DECREASED [None]
